FAERS Safety Report 15247228 (Version 4)
Quarter: 2018Q4

REPORT INFORMATION
  Report Type: Spontaneous
  Country: US (occurrence: US)
  Receive Date: 20180807
  Receipt Date: 20181126
  Transmission Date: 20190204
  Serious: Yes (Life-Threatening, Hospitalization, Other)
  Sender: FDA-Public Use
  Company Number: US-CIPLA LTD.-2018US20644

PATIENT

DRUGS (3)
  1. AZITHROMYCIN ANHYDROUS. [Concomitant]
     Active Substance: AZITHROMYCIN ANHYDROUS
     Indication: PNEUMONIA
     Dosage: UNK
     Route: 065
  2. TESTOSTERONE. [Suspect]
     Active Substance: TESTOSTERONE
     Indication: HYPOGONADISM MALE
     Dosage: 200 MG, EVERY 3 WEEKS
     Route: 030
  3. CEFTRIAXONE. [Concomitant]
     Active Substance: CEFTRIAXONE
     Indication: PNEUMONIA
     Dosage: UNK
     Route: 065

REACTIONS (10)
  - Pulmonary oedema [Recovered/Resolved]
  - Cardiomegaly [Unknown]
  - Blood creatinine increased [Unknown]
  - Cardiomyopathy [Recovered/Resolved]
  - Respiratory failure [Unknown]
  - Drug abuse [Unknown]
  - Cardiotoxicity [Recovered/Resolved]
  - Polycythaemia [Unknown]
  - Medication error [Unknown]
  - Blood testosterone increased [Recovered/Resolved]
